FAERS Safety Report 18806818 (Version 3)
Quarter: 2021Q2

REPORT INFORMATION
  Report Type: Report from Study
  Country: US (occurrence: US)
  Receive Date: 20210129
  Receipt Date: 20210402
  Transmission Date: 20210717
  Serious: Yes (Hospitalization, Other)
  Sender: FDA-Public Use
  Company Number: US-BIOGEN-2021BI00971367

PATIENT
  Sex: Female

DRUGS (1)
  1. TYSABRI [Suspect]
     Active Substance: NATALIZUMAB
     Indication: MULTIPLE SCLEROSIS
     Dosage: INFUSED OVER 1 HOUR
     Route: 065
     Dates: start: 20111014

REACTIONS (10)
  - Nasal ulcer [Recovered/Resolved]
  - Asthenia [Not Recovered/Not Resolved]
  - Device related infection [Recovered/Resolved]
  - Infection [Recovered/Resolved]
  - Stomatitis [Recovered/Resolved]
  - Skin infection [Recovered/Resolved]
  - Urinary tract infection [Recovered/Resolved]
  - Wrist fracture [Unknown]
  - Staphylococcal infection [Recovered/Resolved]
  - Depressed mood [Recovered/Resolved]
